FAERS Safety Report 9633343 (Version 1)
Quarter: 2013Q4

REPORT INFORMATION
  Report Type: Spontaneous
  Country: US (occurrence: US)
  Receive Date: 20131021
  Receipt Date: 20131021
  Transmission Date: 20140711
  Serious: No
  Sender: FDA-Public Use
  Company Number: US-B.I. PHARMACEUTICALS,INC./RIDGEFIELD-2013-BI-31901BP

PATIENT
  Sex: Male
  Weight: 136 kg

DRUGS (14)
  1. MICARDIS [Suspect]
     Indication: HYPOPROTEINAEMIA
     Dosage: 20 MG
     Route: 048
     Dates: start: 2009, end: 2011
  2. MICARDIS [Suspect]
     Indication: HYPERTENSION
     Dosage: 40 MG
     Route: 048
     Dates: start: 2011
  3. LEVOTHYROXINE [Concomitant]
     Indication: THYROID DISORDER
     Dosage: 25 MCG
     Route: 048
  4. METFORMIN [Concomitant]
     Indication: TYPE 2 DIABETES MELLITUS
     Dosage: 500 MG
     Route: 048
  5. METFORMIN [Concomitant]
     Dosage: 2000 MG
     Route: 048
  6. HYDROCHLOROTHIAZIDE [Concomitant]
     Indication: HYPERTENSION
     Dosage: 50 MG
     Route: 048
  7. GABAPENTIN [Concomitant]
     Indication: NEUROPATHY PERIPHERAL
     Dosage: 3000 MG
     Route: 048
  8. LIPITOR [Concomitant]
     Indication: BLOOD CHOLESTEROL INCREASED
     Dosage: 20 MG
     Route: 048
  9. LISINOPRIL [Concomitant]
     Indication: HYPERTENSION
     Dosage: 40 MG
     Route: 048
  10. GLIMEPIRIDE [Concomitant]
     Indication: TYPE 2 DIABETES MELLITUS
     Dosage: 6 MG
     Route: 048
  11. CLONIDINE HYDROCHLORIDE [Concomitant]
     Dosage: 0.1 MG
     Route: 048
  12. LANTUS INSULIN [Concomitant]
     Indication: TYPE 2 DIABETES MELLITUS
     Dosage: 50 U
     Route: 058
  13. NOVOLOG [Concomitant]
     Indication: TYPE 2 DIABETES MELLITUS
     Dosage: 70 U
     Route: 058
  14. NOVOLOG [Concomitant]
     Dosage: FORMULATION: SUBCUTANEOUS
     Route: 058

REACTIONS (11)
  - Stress [Recovered/Resolved]
  - Lower limb fracture [Recovered/Resolved with Sequelae]
  - Wrist fracture [Recovered/Resolved with Sequelae]
  - Stress [Not Recovered/Not Resolved]
  - Hand fracture [Recovered/Resolved with Sequelae]
  - Road traffic accident [Recovered/Resolved]
  - Local swelling [Not Recovered/Not Resolved]
  - Blood glucose increased [Not Recovered/Not Resolved]
  - Glycosylated haemoglobin increased [Not Recovered/Not Resolved]
  - Blood pressure increased [Recovered/Resolved]
  - Off label use [Not Recovered/Not Resolved]
